FAERS Safety Report 13318053 (Version 1)
Quarter: 2017Q1

REPORT INFORMATION
  Report Type: Spontaneous
  Country: US (occurrence: US)
  Receive Date: 20170309
  Receipt Date: 20170309
  Transmission Date: 20170428
  Serious: Yes (Other)
  Sender: FDA-Public Use
  Company Number: None

PATIENT
  Age: 64 Year
  Sex: Female
  Weight: 62.55 kg

DRUGS (5)
  1. PRILOSEC [Concomitant]
     Active Substance: OMEPRAZOLE MAGNESIUM
  2. FISH OIL [Concomitant]
     Active Substance: FISH OIL
  3. TIZANIDINE 2 MG TABLETS [Suspect]
     Active Substance: TIZANIDINE
     Indication: BACK PAIN
     Dosage: ?          QUANTITY:1 TABLET(S);?
     Route: 048
     Dates: start: 20170303, end: 20170307
  4. TURMERIC [Concomitant]
     Active Substance: TURMERIC
  5. TIZANIDINE 2 MG TABLETS [Suspect]
     Active Substance: TIZANIDINE
     Indication: ABDOMINAL PAIN
     Dosage: ?          QUANTITY:1 TABLET(S);?
     Route: 048
     Dates: start: 20170303, end: 20170307

REACTIONS (10)
  - Feeling cold [None]
  - Cyanosis [None]
  - Decreased appetite [None]
  - Diarrhoea [None]
  - Hyperhidrosis [None]
  - Peripheral coldness [None]
  - Middle insomnia [None]
  - Dry mouth [None]
  - Constipation [None]
  - Nausea [None]

NARRATIVE: CASE EVENT DATE: 20170303
